FAERS Safety Report 7414553-2 (Version None)
Quarter: 2011Q2

REPORT INFORMATION
  Report Type: 
  Country: None (occurrence: None)
  Receive Date: 20110414
  Receipt Date: 20110402
  Transmission Date: 20111010
  Serious: Yes (Other)
  Sender: FDA-Public Use
  Company Number: DE-PFIZER INC-2011070346

PATIENT
  Age: 60 Year
  Sex: Female
  Weight: 64 kg

DRUGS (2)
  1. AROMASIN [Suspect]
     Indication: BREAST CANCER FEMALE
     Dosage: 1 DF, 1X/DAY
     Route: 048
     Dates: start: 20101201, end: 20110224
  2. AROMASIN [Suspect]
     Dosage: 1 DF, EVERY 32HOURS
     Dates: start: 20110225

REACTIONS (6)
  - ALANINE AMINOTRANSFERASE INCREASED [None]
  - BLOOD ALKALINE PHOSPHATASE INCREASED [None]
  - INSOMNIA [None]
  - GAMMA-GLUTAMYLTRANSFERASE INCREASED [None]
  - FAECES DISCOLOURED [None]
  - FOCAL NODULAR HYPERPLASIA [None]
